FAERS Safety Report 12156900 (Version 1)
Quarter: 2016Q1

REPORT INFORMATION
  Report Type: Spontaneous
  Country: DE (occurrence: DE)
  Receive Date: 20160307
  Receipt Date: 20160307
  Transmission Date: 20160526
  Serious: Yes (Other)
  Sender: FDA-Public Use
  Company Number: DE-ACORDA-ACO_121790_2016

PATIENT

DRUGS (1)
  1. QUTENZA [Suspect]
     Active Substance: CAPSAICIN
     Indication: POLYNEUROPATHY
     Dosage: 1 PATCH, UNKNOWN FREQ.
     Route: 061

REACTIONS (2)
  - Pain [Recovered/Resolved]
  - Drug ineffective [Unknown]
